FAERS Safety Report 23987246 (Version 6)
Quarter: 2024Q4

REPORT INFORMATION
  Report Type: Report from Study
  Country: US (occurrence: US)
  Receive Date: 20240618
  Receipt Date: 20241104
  Transmission Date: 20250114
  Serious: Yes (Hospitalization, Other)
  Sender: NOVARTIS
  Company Number: US-002147023-NVSC2024US127198

PATIENT
  Sex: Male

DRUGS (3)
  1. TAFINLAR [Suspect]
     Active Substance: DABRAFENIB MESYLATE
     Indication: Brain neoplasm malignant
     Dosage: 110 MG, Q12H (TWICE A DAY)
     Route: 048
  2. MEKINIST [Suspect]
     Active Substance: TRAMETINIB DIMETHYL SULFOXIDE
     Indication: Brain neoplasm malignant
     Dosage: 27 ML, QD
     Route: 065
     Dates: start: 20240625
  3. MEKINIST [Suspect]
     Active Substance: TRAMETINIB DIMETHYL SULFOXIDE
     Dosage: 27 ML, (1.35 MG) QD
     Route: 048

REACTIONS (8)
  - Inappropriate schedule of product administration [Unknown]
  - Brain neoplasm malignant [Not Recovered/Not Resolved]
  - Malignant neoplasm progression [Unknown]
  - Facial paralysis [Unknown]
  - Dysphagia [Unknown]
  - Muscular weakness [Unknown]
  - Off label use [Unknown]
  - Circumstance or information capable of leading to medication error [Unknown]
